FAERS Safety Report 7632510-8 (Version None)
Quarter: 2011Q3

REPORT INFORMATION
  Report Type: 
  Country: None (occurrence: None)
  Receive Date: 20110725
  Receipt Date: 20100927
  Transmission Date: 20111222
  Serious: No
  Sender: FDA-Public Use
  Company Number: US-BRISTOL-MYERS SQUIBB COMPANY-15306426

PATIENT
  Sex: Female

DRUGS (6)
  1. COUMADIN [Suspect]
     Dosage: 1 DF= 3 MG IN SOME DAY AND 6 MG OTHER DAYS BASED ON INR LEVEL.THERAPY STARTED 3 WEEKS AGO
     Dates: start: 20100101
  2. COLLAGEN [Concomitant]
     Dosage: COLLAGEN PLUS C
  3. LORTAB [Concomitant]
  4. MINERAL TAB [Concomitant]
  5. CALCIUM CARBONATE [Concomitant]
  6. VITAMIN D [Concomitant]

REACTIONS (1)
  - INTERNATIONAL NORMALISED RATIO FLUCTUATION [None]
